FAERS Safety Report 6550385-5 (Version None)
Quarter: 2010Q1

REPORT INFORMATION
  Report Type: 
  Country: None (occurrence: None)
  Receive Date: 20100125
  Receipt Date: 20100118
  Transmission Date: 20100710
  Serious: Yes (Death, Other)
  Sender: FDA-Public Use
  Company Number: BR-SANOFI-AVENTIS-2010SA003106

PATIENT
  Age: 84 Year
  Sex: Female
  Weight: 64.3 kg

DRUGS (2)
  1. LANTUS [Suspect]
     Route: 058
     Dates: start: 20070101, end: 20090406
  2. AUTOPEN 24 [Suspect]
     Route: 058
     Dates: end: 20090406

REACTIONS (2)
  - CARDIAC ARREST [None]
  - UTERINE PROLAPSE [None]
